FAERS Safety Report 8934983 (Version 1)
Quarter: 2012Q4

REPORT INFORMATION
  Report Type: 
  Country: US (occurrence: US)
  Receive Date: 20121129
  Receipt Date: 20121129
  Transmission Date: 20130627
  Serious: Yes (Hospitalization, Other)
  Sender: FDA-Public Use
  Company Number: US-MERCK-1211USA010678

PATIENT
  Sex: Male

DRUGS (3)
  1. PEGINTRON [Suspect]
     Indication: HEPATITIS C
     Dosage: UNK
     Dates: start: 20120831
  2. RIBAVIRIN [Suspect]
     Indication: HEPATITIS C
     Dosage: UNK
     Route: 048
     Dates: start: 20120831
  3. VICTRELIS [Suspect]
     Indication: HEPATITIS C
     Dosage: UNK
     Route: 048
     Dates: start: 20121026, end: 20121115

REACTIONS (12)
  - Suicidal ideation [Unknown]
  - Homicidal ideation [Unknown]
  - Vision blurred [Unknown]
  - Eye pain [Unknown]
  - Anxiety [Recovered/Resolved]
  - Tinnitus [Recovered/Resolved]
  - Back pain [Unknown]
  - Nausea [Unknown]
  - Injection site pain [Unknown]
  - Pain [Unknown]
  - Fatigue [Unknown]
  - Irritability [Unknown]
